FAERS Safety Report 5642032-1 (Version None)
Quarter: 2008Q1

REPORT INFORMATION
  Report Type: 
  Country: None (occurrence: None)
  Receive Date: 20080225
  Receipt Date: 20080208
  Transmission Date: 20080703
  Serious: Yes (Death, Disabling)
  Sender: FDA-Public Use
  Company Number: DSA_31434_2008

PATIENT
  Sex: Female

DRUGS (2)
  1. DILZEM /00489701/ (DILZEM - DILTIAZEM) [Suspect]
  2. ALDAZIDE (ALDAZIDE - SPIRONOLACTONE + HYDROCHLOROTHIAZIDE) [Suspect]

REACTIONS (5)
  - ANXIETY [None]
  - GAIT DISTURBANCE [None]
  - MULTI-ORGAN FAILURE [None]
  - OEDEMA [None]
  - PAIN [None]
